FAERS Safety Report 16899456 (Version 2)
Quarter: 2019Q4

REPORT INFORMATION
  Report Type: Spontaneous
  Country: US (occurrence: US)
  Receive Date: 20191009
  Receipt Date: 20191021
  Transmission Date: 20200122
  Serious: Yes (Congenital Anomaly, Other)
  Sender: FDA-Public Use
  Company Number: US-PFIZER INC-2019430661

PATIENT
  Sex: Female
  Weight: 1.25 kg

DRUGS (1)
  1. METHOTREXATE SODIUM. [Suspect]
     Active Substance: METHOTREXATE SODIUM
     Indication: ABORTION INDUCED
     Dosage: UNK, SINGLE (ONE DOSE)
     Route: 064

REACTIONS (8)
  - Premature baby [Unknown]
  - Brachydactyly [Recovering/Resolving]
  - Skull malformation [Unknown]
  - Cervical spinal stenosis [Recovering/Resolving]
  - Maternal exposure during pregnancy [Unknown]
  - Ectrodactyly [Recovering/Resolving]
  - Adactyly [Recovering/Resolving]
  - Talipes [Recovering/Resolving]
